FAERS Safety Report 9409688 (Version 3)
Quarter: 2014Q1

REPORT INFORMATION
  Report Type: Spontaneous
  Country: US (occurrence: US)
  Receive Date: 20130719
  Receipt Date: 20140106
  Transmission Date: 20141002
  Serious: Yes (Hospitalization, Other)
  Sender: FDA-Public Use
  Company Number: PHEH2013US015104

PATIENT
  Sex: Female
  Weight: 48.18 kg

DRUGS (12)
  1. COMBIPATCH [Suspect]
     Indication: HOT FLUSH
     Dosage: 1 DF, PER DAY
     Route: 062
     Dates: start: 201209
  2. COMBIPATCH [Suspect]
     Indication: VAGINAL HAEMORRHAGE
     Dosage: UNK UKN, UNK
     Route: 062
     Dates: start: 20130102
  3. SYNTHROID [Concomitant]
     Indication: HYPOTHYROIDISM
     Dosage: 50 UG, QD
     Route: 048
     Dates: start: 20111206, end: 20121225
  4. ADVAIR [Concomitant]
     Indication: ASTHMA
     Dosage: 1 DF, BID
     Route: 055
     Dates: start: 20110910, end: 20121225
  5. PLAQUENIL [Concomitant]
     Dosage: 200 MG, QD
     Route: 048
     Dates: start: 20111024, end: 20121225
  6. PROAIR HFA [Concomitant]
     Dosage: 1 DF, Q6H
     Route: 055
     Dates: start: 20110909, end: 20121225
  7. TYLENOL W/CODEINE [Concomitant]
     Dosage: 1 DF, Q6H
     Route: 048
     Dates: start: 20110909, end: 20121225
  8. MOTRIN [Concomitant]
     Dosage: 800 MG, TID
     Route: 048
     Dates: start: 20110909, end: 20121225
  9. PROVENTIL [Concomitant]
     Dosage: 4 MG, Q6H
     Route: 048
     Dates: start: 20110909
  10. PROVENTIL [Concomitant]
     Dosage: 2.5 MG, Q6H
     Route: 048
     Dates: start: 20111206, end: 20121225
  11. DECADRON                                /CAN/ [Concomitant]
     Dosage: 2 MG, QD
     Dates: start: 20121225, end: 20121225
  12. BARBITURATES [Concomitant]
     Dosage: UNK UKN, UNK

REACTIONS (23)
  - Pneumonia pseudomonal [Unknown]
  - Sepsis [Unknown]
  - Systemic inflammatory response syndrome [Unknown]
  - Stress cardiomyopathy [Unknown]
  - Acute respiratory distress syndrome [Unknown]
  - Respiratory acidosis [Unknown]
  - Respiratory failure [Unknown]
  - Cough [Unknown]
  - Productive cough [Unknown]
  - Dyspnoea [Unknown]
  - Pyrexia [Unknown]
  - Asthenia [Unknown]
  - Nausea [Unknown]
  - Metrorrhagia [Unknown]
  - Vaginal haemorrhage [Unknown]
  - Anaemia [Unknown]
  - Influenza A virus test positive [Unknown]
  - Adrenal insufficiency [Unknown]
  - Decreased appetite [Unknown]
  - Electrocardiogram change [Unknown]
  - Troponin increased [Unknown]
  - Sinus headache [Unknown]
  - Headache [Unknown]
